FAERS Safety Report 23633453 (Version 2)
Quarter: 2024Q2

REPORT INFORMATION
  Report Type: Spontaneous
  Country: US (occurrence: US)
  Receive Date: 20240314
  Receipt Date: 20240401
  Transmission Date: 20240716
  Serious: Yes (Death, Hospitalization)
  Sender: FDA-Public Use
  Company Number: US-TEVA-VS-3169467

PATIENT
  Age: 31 Year
  Sex: Male

DRUGS (1)
  1. PREDNISONE [Suspect]
     Active Substance: PREDNISONE
     Indication: Vasculitis
     Dosage: TAPERING FOR PROLONGED DURATION
     Route: 065

REACTIONS (2)
  - Disseminated blastomycosis [Fatal]
  - Acute respiratory distress syndrome [Fatal]
